FAERS Safety Report 9397221 (Version 3)
Quarter: 2014Q3

REPORT INFORMATION
  Report Type: Spontaneous
  Country: US (occurrence: US)
  Receive Date: 20130712
  Receipt Date: 20140729
  Transmission Date: 20150326
  Serious: No
  Sender: FDA-Public Use
  Company Number: US-GLAXOSMITHKLINE-A1021874A

PATIENT
  Age: 68 Year
  Sex: Male

DRUGS (2)
  1. NO CONCURRENT MEDICATION [Concomitant]
     Active Substance: UNSPECIFIED INGREDIENT
  2. JALYN [Suspect]
     Active Substance: DUTASTERIDE\TAMSULOSIN HYDROCHLORIDE
     Indication: BENIGN PROSTATIC HYPERPLASIA
     Dosage: 1CAP PER DAY
     Route: 048
     Dates: start: 2011

REACTIONS (7)
  - Pain [Unknown]
  - Therapeutic response decreased [Unknown]
  - Urinary tract infection [Unknown]
  - Product quality issue [Unknown]
  - Insomnia [Unknown]
  - Drug ineffective [Unknown]
  - Pollakiuria [Unknown]

NARRATIVE: CASE EVENT DATE: 201304
